FAERS Safety Report 12831630 (Version 2)
Quarter: 2016Q4

REPORT INFORMATION
  Report Type: Report from Study
  Country: CN (occurrence: CN)
  Receive Date: 20161009
  Receipt Date: 20161221
  Transmission Date: 20170207
  Serious: Yes (Hospitalization, Other)
  Sender: FDA-Public Use
  Company Number: CN-ROCHE-1792930

PATIENT
  Sex: Female
  Weight: 60 kg

DRUGS (1)
  1. AVASTIN [Suspect]
     Active Substance: BEVACIZUMAB
     Indication: NON-SMALL CELL LUNG CANCER
     Route: 041
     Dates: start: 20160317

REACTIONS (6)
  - Pyrexia [Unknown]
  - Cough [Unknown]
  - Bone marrow failure [Unknown]
  - General physical health deterioration [Unknown]
  - White blood cell count decreased [Recovered/Resolved]
  - White blood cell count decreased [Unknown]
